FAERS Safety Report 7933907-9 (Version None)
Quarter: 2011Q4

REPORT INFORMATION
  Report Type: 
  Country: None (occurrence: None)
  Receive Date: 20111122
  Receipt Date: 20111115
  Transmission Date: 20120403
  Serious: Yes (Hospitalization)
  Sender: FDA-Public Use
  Company Number: US-US-EMD SERONO, INC.-7096240

PATIENT
  Sex: Male

DRUGS (2)
  1. REBIF [Suspect]
     Indication: PRODUCT USED FOR UNKNOWN INDICATION
     Route: 058
     Dates: start: 20101122, end: 20111017
  2. REBIF [Suspect]
     Route: 058
     Dates: start: 20111031

REACTIONS (3)
  - DIPLOPIA [None]
  - INFLUENZA LIKE ILLNESS [None]
  - INTRACRANIAL HYPOTENSION [None]
